FAERS Safety Report 17220650 (Version 2)
Quarter: 2020Q2

REPORT INFORMATION
  Report Type: Spontaneous
  Country: US (occurrence: US)
  Receive Date: 20191231
  Receipt Date: 20200407
  Transmission Date: 20200713
  Serious: Yes (Hospitalization, Disabling)
  Sender: FDA-Public Use
  Company Number: US-009507513-1912USA011754

PATIENT
  Age: 22 Year
  Sex: Female
  Weight: 54.33 kg

DRUGS (5)
  1. TRINTELLIX [Concomitant]
     Active Substance: VORTIOXETINE HYDROBROMIDE
  2. NEXPLANON [Suspect]
     Active Substance: ETONOGESTREL
     Dosage: 1 DF
     Route: 059
     Dates: start: 201907
  3. KLONOPIN [Concomitant]
     Active Substance: CLONAZEPAM
  4. REXULTI [Concomitant]
     Active Substance: BREXPIPRAZOLE
  5. ZOFRAN [Concomitant]
     Active Substance: ONDANSETRON HYDROCHLORIDE

REACTIONS (2)
  - Nausea [Not Recovered/Not Resolved]
  - Lactation disorder [Not Recovered/Not Resolved]

NARRATIVE: CASE EVENT DATE: 2019
